FAERS Safety Report 4289249-9 (Version None)
Quarter: 2004Q1

REPORT INFORMATION
  Report Type: 
  Country: None (occurrence: None)
  Receive Date: 20040203
  Receipt Date: 20000328
  Transmission Date: 20041129
  Serious: Yes (Other)
  Sender: FDA-Public Use
  Company Number: 2000-045

PATIENT
  Age: 21 Year
  Sex: Male

DRUGS (1)
  1. DORYX [Suspect]
     Indication: CHLAMYDIAL INFECTION
     Dosage: 100 MG QD ORAL
     Route: 048
     Dates: start: 19990129, end: 19990206

REACTIONS (2)
  - OESOPHAGEAL ULCER [None]
  - OESOPHAGITIS [None]
